FAERS Safety Report 13144484 (Version 1)
Quarter: 2017Q1

REPORT INFORMATION
  Report Type: Spontaneous
  Country: ME (occurrence: ME)
  Receive Date: 20170124
  Receipt Date: 20170124
  Transmission Date: 20170428
  Serious: Yes (Other)
  Sender: FDA-Public Use
  Company Number: ME-BAYER-2017-009432

PATIENT
  Age: 50 Year
  Sex: Female

DRUGS (3)
  1. REDERGIN [DIHYDROERGOTOXINE MESILATE] [Concomitant]
     Dosage: 1.5 MG, TID
  2. ASPIRIN. [Suspect]
     Active Substance: ASPIRIN
     Indication: PRODUCT USED FOR UNKNOWN INDICATION
     Dosage: 100 MG, QD
  3. TANAKAN [Suspect]
     Active Substance: GINKGO
     Indication: PRODUCT USED FOR UNKNOWN INDICATION
     Dosage: UNK

REACTIONS (6)
  - Vertigo [Recovering/Resolving]
  - Dizziness [None]
  - Cerebral ischaemia [Unknown]
  - Contusion [Unknown]
  - Cerebral ischaemia [None]
  - Dizziness postural [Recovering/Resolving]

NARRATIVE: CASE EVENT DATE: 201302
